FAERS Safety Report 23488053 (Version 1)
Quarter: 2024Q1

REPORT INFORMATION
  Report Type: Spontaneous
  Country: US (occurrence: US)
  Receive Date: 20240206
  Receipt Date: 20240206
  Transmission Date: 20240410
  Serious: No
  Sender: FDA-Public Use
  Company Number: US-MEDICUREINC-2024USSPO00001

PATIENT
  Age: 62 Year
  Sex: Female

DRUGS (1)
  1. ZYPITAMAG [Suspect]
     Active Substance: PITAVASTATIN
     Indication: Product used for unknown indication
     Route: 048

REACTIONS (2)
  - Dyspnoea [Unknown]
  - Diarrhoea [Unknown]
